FAERS Safety Report 4400052-9 (Version None)
Quarter: 2004Q3

REPORT INFORMATION
  Report Type: 
  Country: None (occurrence: None)
  Receive Date: 20040714
  Receipt Date: 20040628
  Transmission Date: 20050211
  Serious: Yes (Other)
  Sender: FDA-Public Use
  Company Number: IE-JNJFOC-20040604519

PATIENT
  Age: 12 Year
  Sex: Male
  Weight: 52 kg

DRUGS (2)
  1. RISPERDAL [Suspect]
     Indication: ATTENTION DEFICIT/HYPERACTIVITY DISORDER
     Dosage: 0.5 MG, ORAL
     Route: 048
     Dates: start: 20030918, end: 20040211
  2. CONCERTA [Suspect]
     Indication: ATTENTION DEFICIT/HYPERACTIVITY DISORDER
     Dosage: 54 MG, ORAL
     Route: 048
     Dates: start: 20030918

REACTIONS (2)
  - DRUG INTERACTION [None]
  - GYNAECOMASTIA [None]
